FAERS Safety Report 5557615-7 (Version None)
Quarter: 2007Q4

REPORT INFORMATION
  Report Type: 
  Country: None (occurrence: None)
  Receive Date: 20071214
  Receipt Date: 20071205
  Transmission Date: 20080405
  Serious: Yes (Death, Hospitalization)
  Sender: FDA-Public Use
  Company Number: B0493035A

PATIENT
  Age: 90 Year
  Sex: Male
  Weight: 65 kg

DRUGS (7)
  1. PAROXETINE HCL [Suspect]
     Indication: DEPRESSION
     Dosage: 10MG TWICE PER DAY
     Route: 048
     Dates: start: 20071022
  2. LORAZEPAM [Concomitant]
     Dosage: 1.25MG PER DAY
     Route: 048
  3. CORDARONE [Concomitant]
     Dosage: 1TAB FIVE TIMES PER WEEK
     Route: 048
  4. COZAAR [Concomitant]
     Dosage: 50MG PER DAY
     Route: 048
  5. KARDEGIC [Concomitant]
     Dosage: 75MG PER DAY
     Route: 048
  6. LASIX [Concomitant]
     Dosage: 40MG PER DAY
     Route: 048
  7. PERFUSION [Concomitant]
     Indication: DELIRIUM
     Route: 042
     Dates: start: 20071122

REACTIONS (10)
  - AGITATION [None]
  - COMA [None]
  - CONFUSIONAL STATE [None]
  - DEATH [None]
  - DELIRIUM [None]
  - FLIGHT OF IDEAS [None]
  - HYPOTENSION [None]
  - LOGORRHOEA [None]
  - MEMORY IMPAIRMENT [None]
  - SOMNOLENCE [None]
